FAERS Safety Report 4330440-0 (Version None)
Quarter: 2004Q1

REPORT INFORMATION
  Report Type: 
  Country: None (occurrence: None)
  Receive Date: 20040330
  Receipt Date: 20040318
  Transmission Date: 20041129
  Serious: Yes (Life-Threatening)
  Sender: FDA-Public Use
  Company Number: GB-JNJFOC-20040304172

PATIENT
  Age: 60 Year
  Sex: Female

DRUGS (8)
  1. REMICADE [Suspect]
     Indication: RHEUMATOID ARTHRITIS
     Dosage: 200 MG, INTRAVENOUS
     Route: 042
     Dates: start: 20030402, end: 20030715
  2. METHOTREXATE [Concomitant]
  3. PREDNISOLONE [Concomitant]
  4. PAMIDRONATE DISODIUM [Concomitant]
  5. FOLIC ACID [Concomitant]
  6. CO-PROXAMOL (APOREX) [Concomitant]
  7. CO-AMILOZIDE (MODURETIC) [Concomitant]
  8. INHALERS (ANTI-ASTHMATICS) [Concomitant]

REACTIONS (1)
  - ASTHMA [None]
